FAERS Safety Report 18144997 (Version 2)
Quarter: 2020Q4

REPORT INFORMATION
  Report Type: Report from Study
  Country: None (occurrence: US)
  Receive Date: 20200813
  Receipt Date: 20201120
  Transmission Date: 20210113
  Serious: Yes (Other)
  Sender: FDA-Public Use
  Company Number: US-ABBVIE-20K-163-3518597-00

PATIENT
  Sex: Female

DRUGS (1)
  1. HUMIRA [Suspect]
     Active Substance: ADALIMUMAB
     Indication: CROHN^S DISEASE
     Route: 058

REACTIONS (4)
  - Systemic lupus erythematosus [Not Recovered/Not Resolved]
  - Gait disturbance [Unknown]
  - Mobility decreased [Unknown]
  - Lyme disease [Unknown]
